FAERS Safety Report 8185967-0 (Version None)
Quarter: 2012Q1

REPORT INFORMATION
  Report Type: 
  Country: None (occurrence: None)
  Receive Date: 20120305
  Receipt Date: 20120224
  Transmission Date: 20120608
  Serious: Yes (Death, Hospitalization, Other)
  Sender: FDA-Public Use
  Company Number: SK-BRISTOL-MYERS SQUIBB COMPANY-16389249

PATIENT
  Age: 46 Year
  Sex: Male

DRUGS (3)
  1. YERVOY [Suspect]
     Indication: METASTASES TO LUNG
     Dosage: 2ND DOSE: 14DEC11. FORM:YERVOY 5MG/ML CONCENTRATE FOR SOLUTION FOR INFUSION
     Route: 042
     Dates: start: 20111123
  2. YERVOY [Suspect]
     Indication: METASTASES TO LIVER
     Dosage: 2ND DOSE: 14DEC11. FORM:YERVOY 5MG/ML CONCENTRATE FOR SOLUTION FOR INFUSION
     Route: 042
     Dates: start: 20111123
  3. YERVOY [Suspect]
     Indication: RENAL CANCER
     Dosage: 2ND DOSE: 14DEC11. FORM:YERVOY 5MG/ML CONCENTRATE FOR SOLUTION FOR INFUSION
     Route: 042
     Dates: start: 20111123

REACTIONS (5)
  - NEOPLASM MALIGNANT [None]
  - OFF LABEL USE [None]
  - HEPATORENAL FAILURE [None]
  - HYPOPHYSITIS [None]
  - RESPIRATORY FAILURE [None]
